FAERS Safety Report 7229558-4 (Version None)
Quarter: 2011Q1

REPORT INFORMATION
  Report Type: 
  Country: None (occurrence: None)
  Receive Date: 20110117
  Receipt Date: 20110112
  Transmission Date: 20110831
  Serious: Yes (Death)
  Sender: FDA-Public Use
  Company Number: US-MEDIMMUNE-MEDI-0012208

PATIENT
  Sex: Female

DRUGS (2)
  1. TYLENOL [Concomitant]
  2. SYNAGIS [Suspect]
     Route: 030

REACTIONS (1)
  - DEATH [None]
